FAERS Safety Report 7450780-6 (Version None)
Quarter: 2011Q2

REPORT INFORMATION
  Report Type: 
  Country: None (occurrence: None)
  Receive Date: 20110502
  Receipt Date: 20110421
  Transmission Date: 20111010
  Serious: No
  Sender: FDA-Public Use
  Company Number: US-BAYER-2011-034780

PATIENT
  Sex: Female

DRUGS (2)
  1. YASMIN [Suspect]
     Indication: CONTRACEPTION
     Dosage: UNK UNK, QD
     Dates: start: 20060101
  2. YASMIN [Suspect]
     Indication: ENDOMETRIOSIS

REACTIONS (4)
  - GENITAL PAIN [None]
  - ABDOMINAL PAIN [None]
  - FEELING ABNORMAL [None]
  - BREAST TENDERNESS [None]
